FAERS Safety Report 5669773-4 (Version None)
Quarter: 2008Q1

REPORT INFORMATION
  Report Type: 
  Country: None (occurrence: None)
  Receive Date: 20080313
  Receipt Date: 20080313
  Transmission Date: 20080703
  Serious: Yes (Other)
  Sender: FDA-Public Use
  Company Number: None

PATIENT
  Sex: Female
  Weight: 119.296 kg

DRUGS (8)
  1. CYMBALTA [Suspect]
     Indication: MAJOR DEPRESSION
     Dosage: 90MG QDAY PO
     Route: 048
     Dates: start: 20071115, end: 20080214
  2. CYMBALTA [Suspect]
     Indication: PANIC DISORDER
     Dosage: THEN 120 MG Q DAY PO
     Route: 048
  3. SYNTHROID [Concomitant]
  4. GLUCOTROL XL [Concomitant]
  5. ASPIRIN [Concomitant]
  6. NEURONTIN [Concomitant]
  7. ACCUPRIL [Concomitant]
  8. TRAZODONE HCL [Concomitant]

REACTIONS (2)
  - ACNE [None]
  - SKIN EXFOLIATION [None]
